FAERS Safety Report 17191846 (Version 3)
Quarter: 2020Q1

REPORT INFORMATION
  Report Type: Spontaneous
  Country: PK (occurrence: PK)
  Receive Date: 20191223
  Receipt Date: 20200127
  Transmission Date: 20200409
  Serious: Yes (Other)
  Sender: FDA-Public Use
  Company Number: PK-PFIZER INC-2019229063

PATIENT
  Age: 59 Year
  Sex: Male

DRUGS (1)
  1. SUTENT [Suspect]
     Active Substance: SUNITINIB MALATE
     Indication: DERMATOFIBROSARCOMA PROTUBERANS
     Dosage: 50 MG, CYCLIC, (4 WEEKS ON AND 2 WEEKS OFF )
     Dates: start: 20190520, end: 201912

REACTIONS (6)
  - Degenerative bone disease [Recovering/Resolving]
  - Neoplasm progression [Recovering/Resolving]
  - Pericardial effusion [Recovering/Resolving]
  - Pleural effusion [Recovering/Resolving]
  - Off label use [Unknown]
  - Product use in unapproved indication [Unknown]

NARRATIVE: CASE EVENT DATE: 20190629
